FAERS Safety Report 24860103 (Version 1)
Quarter: 2025Q1

REPORT INFORMATION
  Report Type: Report from Study
  Country: US (occurrence: US)
  Receive Date: 20250120
  Receipt Date: 20250120
  Transmission Date: 20250408
  Serious: Yes (Other)
  Sender: UCB
  Company Number: US-UCBSA-2025001909

PATIENT
  Age: 8 Year
  Sex: Female

DRUGS (1)
  1. FINTEPLA [Suspect]
     Active Substance: FENFLURAMINE
     Indication: Severe myoclonic epilepsy of infancy
     Dosage: 4.4 MILLILITER, 2X/DAY (BID)
     Dates: start: 20220727

REACTIONS (3)
  - Vagal nerve stimulator implantation [Not Recovered/Not Resolved]
  - Seizure [Unknown]
  - Cyanosis [Unknown]

NARRATIVE: CASE EVENT DATE: 20241020
